FAERS Safety Report 5141542-3 (Version None)
Quarter: 2006Q4

REPORT INFORMATION
  Report Type: 
  Country: None (occurrence: None)
  Receive Date: 20061026
  Receipt Date: 20061011
  Transmission Date: 20070319
  Serious: Yes (Other)
  Sender: FDA-Public Use
  Company Number: 2006127206

PATIENT
  Age: 56 Year
  Sex: Female
  Weight: 73.9363 kg

DRUGS (1)
  1. BEXTRA [Suspect]
     Indication: ARTHRITIS
     Dosage: 20 MG (20 MG, 1 IN 1 D)
     Dates: start: 20000201

REACTIONS (2)
  - BLINDNESS UNILATERAL [None]
  - OCULAR VASCULAR DISORDER [None]
